FAERS Safety Report 19611228 (Version 1)
Quarter: 2021Q3

REPORT INFORMATION
  Report Type: Spontaneous
  Country: US (occurrence: US)
  Receive Date: 20210726
  Receipt Date: 20210726
  Transmission Date: 20211014
  Serious: No
  Sender: FDA-Public Use
  Company Number: US-ENDO PHARMACEUTICALS INC-2020-005561

PATIENT
  Sex: Male

DRUGS (6)
  1. EDEX [Suspect]
     Active Substance: ALPROSTADIL
     Dosage: 20 MCG UNKNOWN, UNKNOWN
  2. EDEX [Suspect]
     Active Substance: ALPROSTADIL
     Indication: PRODUCT USED FOR UNKNOWN INDICATION
     Dosage: 20 MCG UNKNOWN, UNKNOWN
  3. EDEX [Suspect]
     Active Substance: ALPROSTADIL
     Dosage: 20 MCG UNKNOWN, UNKNOWN
  4. EDEX [Suspect]
     Active Substance: ALPROSTADIL
     Dosage: 20 MCG UNKNOWN, UNKNOWN
  5. EDEX [Suspect]
     Active Substance: ALPROSTADIL
     Indication: PRODUCT USED FOR UNKNOWN INDICATION
     Dosage: 20 MCG UNKNOWN, UNKNOWN
  6. EDEX [Suspect]
     Active Substance: ALPROSTADIL
     Indication: PRODUCT USED FOR UNKNOWN INDICATION
     Dosage: 20 MCG UNKNOWN, UNKNOWN

REACTIONS (2)
  - Drug ineffective [Unknown]
  - Unevaluable event [Unknown]
